FAERS Safety Report 5148935-9 (Version None)
Quarter: 2006Q4

REPORT INFORMATION
  Report Type: 
  Country: None (occurrence: None)
  Receive Date: 20061113
  Receipt Date: 20060928
  Transmission Date: 20070319
  Serious: Yes (Other)
  Sender: FDA-Public Use
  Company Number: PHBS2006JP15239

PATIENT
  Age: 70 Year
  Sex: Female

DRUGS (6)
  1. PINORUBIN [Suspect]
     Dosage: UNK, UNK
     Route: 042
     Dates: start: 20050801
  2. GLEEVEC [Suspect]
     Indication: CHRONIC MYELOID LEUKAEMIA
     Dosage: 300 MG/D
     Route: 048
     Dates: start: 20040801
  3. ADRIAMYCIN PFS [Concomitant]
  4. ENDOXAN [Suspect]
     Dosage: UNK, UNK
     Route: 042
     Dates: start: 20050801
  5. ONCOVIN [Suspect]
     Dosage: UNK, UNK
     Route: 042
     Dates: start: 20050801
  6. PREDONINE [Suspect]
     Dosage: UNK, UNK
     Route: 048
     Dates: start: 20050801

REACTIONS (6)
  - AXILLARY MASS [None]
  - BONE MARROW FAILURE [None]
  - LYMPHADENOPATHY [None]
  - MASS [None]
  - NECROSIS [None]
  - NON-HODGKIN'S LYMPHOMA [None]
